FAERS Safety Report 18228275 (Version 2)
Quarter: 2020Q3

REPORT INFORMATION
  Report Type: Spontaneous
  Country: US (occurrence: US)
  Receive Date: 20200903
  Receipt Date: 20200904
  Transmission Date: 20201103
  Serious: No
  Sender: FDA-Public Use
  Company Number: US-BRISTOL-MYERS SQUIBB COMPANY-BMS-2020-071788

PATIENT
  Sex: Female

DRUGS (1)
  1. SPRYCEL [Suspect]
     Active Substance: DASATINIB
     Indication: LARYNGEAL DISORDER
     Dosage: 100 MILLIGRAM, QD
     Route: 048
     Dates: start: 202008

REACTIONS (4)
  - Fatigue [Unknown]
  - Intentional product use issue [Unknown]
  - Nausea [Unknown]
  - Diarrhoea [Unknown]
